FAERS Safety Report 21144607 (Version 7)
Quarter: 2023Q1

REPORT INFORMATION
  Report Type: Report from Study
  Country: US (occurrence: US)
  Receive Date: 20220728
  Receipt Date: 20230207
  Transmission Date: 20230418
  Serious: No
  Sender: FDA-Public Use
  Company Number: US-NOVARTISTESTPH-NVSC2022US169928

PATIENT
  Age: 59 Year
  Sex: Female

DRUGS (3)
  1. COSENTYX [Suspect]
     Active Substance: SECUKINUMAB
     Indication: Psoriasis
     Dosage: 300 MG, QW (QW FOR FOUR WEEKS AND THEN QMO)
     Route: 058
     Dates: start: 20220628
  2. COSENTYX [Suspect]
     Active Substance: SECUKINUMAB
     Indication: Psoriasis
     Dosage: 150 MG, QW (QW FOR FOUR WEEKS AND THEN QMO)
     Route: 058
  3. METHOTREXATE [Concomitant]
     Active Substance: METHOTREXATE
     Indication: Product used for unknown indication
     Dosage: 6 DOSAGE FORM, QW
     Route: 065

REACTIONS (8)
  - Arthralgia [Unknown]
  - Injection site pruritus [Recovered/Resolved]
  - Psoriasis [Unknown]
  - Skin injury [Unknown]
  - Skin haemorrhage [Unknown]
  - Hepatic enzyme increased [Unknown]
  - Injection site mass [Recovered/Resolved]
  - Drug ineffective [Unknown]

NARRATIVE: CASE EVENT DATE: 20220725
